FAERS Safety Report 5203781-2 (Version None)
Quarter: 2007Q1

REPORT INFORMATION
  Report Type: 
  Country: None (occurrence: None)
  Receive Date: 20070110
  Receipt Date: 20070102
  Transmission Date: 20070707
  Serious: Yes (Death, Life-Threatening, Hospitalization)
  Sender: FDA-Public Use
  Company Number: US-PFIZER INC-2006133114

PATIENT
  Sex: Male
  Weight: 136.1 kg

DRUGS (10)
  1. NORVASC [Interacting]
     Indication: HYPERTENSION
  2. DANTROLENE SODIUM [Interacting]
     Indication: NEUROLEPTIC MALIGNANT SYNDROME
     Route: 042
     Dates: start: 20060711, end: 20060714
  3. DANTROLENE SODIUM [Interacting]
     Dosage: TEXT:UNKNOWN
     Route: 042
     Dates: start: 20060713, end: 20060714
  4. CLOZARIL [Suspect]
     Indication: SCHIZOAFFECTIVE DISORDER
     Dates: start: 20060622, end: 20060709
  5. GLUCOPHAGE [Concomitant]
     Indication: DIABETES MELLITUS
  6. BROMOCRIPTINE MESYLATE [Concomitant]
     Dates: start: 20060711, end: 20060713
  7. ATENOLOL [Concomitant]
  8. CLONAZEPAM [Concomitant]
  9. GLIPIZIDE [Concomitant]
  10. INSULIN [Concomitant]

REACTIONS (26)
  - ABASIA [None]
  - AGITATION [None]
  - ANOXIA [None]
  - APALLIC SYNDROME [None]
  - BLOOD CREATINE PHOSPHOKINASE INCREASED [None]
  - BLOOD CREATININE INCREASED [None]
  - BLOOD PRESSURE FLUCTUATION [None]
  - BLOOD PRESSURE INCREASED [None]
  - BRAIN DEATH [None]
  - CARDIO-RESPIRATORY ARREST [None]
  - COMA [None]
  - DELUSIONAL DISORDER, PERSECUTORY TYPE [None]
  - DRUG INTERACTION [None]
  - FEELING COLD [None]
  - HEART RATE INCREASED [None]
  - HEART RATE IRREGULAR [None]
  - INFECTION [None]
  - LETHARGY [None]
  - MUSCLE TIGHTNESS [None]
  - NEUROLEPTIC MALIGNANT SYNDROME [None]
  - PERSONALITY DISORDER [None]
  - PNEUMONIA [None]
  - PSYCHOTIC DISORDER [None]
  - RESTLESSNESS [None]
  - TREMOR [None]
  - VENTRICULAR FIBRILLATION [None]
